FAERS Safety Report 8300265-X (Version None)
Quarter: 2012Q2

REPORT INFORMATION
  Report Type: 
  Country: None (occurrence: None)
  Receive Date: 20120420
  Receipt Date: 20120413
  Transmission Date: 20120825
  Serious: Yes (Hospitalization, Other)
  Sender: FDA-Public Use
  Company Number: US-BAYER-2011-067102

PATIENT
  Age: 38 Year
  Sex: Female
  Weight: 83 kg

DRUGS (11)
  1. YAZ [Suspect]
     Indication: HORMONE THERAPY
     Dosage: UNK
     Dates: start: 20090101, end: 20090820
  2. YAZ [Suspect]
     Indication: HOT FLUSH
  3. PERCOCET [Concomitant]
     Dosage: 10 MG, PRN
     Route: 048
  4. CITALOPRAM HYDROBROMIDE [Concomitant]
     Indication: DEPRESSION
     Dosage: 20 MG, QD
     Dates: start: 20090731, end: 20090820
  5. YAZ [Suspect]
     Indication: HORMONE REPLACEMENT THERAPY
  6. ALBUTEROL [Concomitant]
     Dosage: UNK UNK, PRN
     Route: 045
  7. HYDROCODONE BITARTRATE AND ACETAMINOPHEN [Concomitant]
     Dosage: 5-500
     Dates: start: 20090627
  8. ASPIRIN [Concomitant]
     Dosage: 325 MG, X 2
     Route: 048
  9. MULTI-VITAMINS [Concomitant]
     Dosage: UNK
     Dates: start: 20090801, end: 20090820
  10. TRAMADOL [Concomitant]
     Indication: PAIN
     Dosage: 1 TAB AS NEEDED
     Dates: start: 20090731, end: 20090820
  11. PEPCID [Concomitant]

REACTIONS (14)
  - PNEUMONIA [None]
  - HAEMOPTYSIS [None]
  - DYSPNOEA [None]
  - PLEURITIC PAIN [None]
  - HYPOXIA [None]
  - MUSCULAR WEAKNESS [None]
  - ANXIETY [None]
  - PULMONARY FIBROSIS [None]
  - CHEST PAIN [None]
  - NAUSEA [None]
  - PULMONARY EMBOLISM [None]
  - EMOTIONAL DISTRESS [None]
  - CHEST DISCOMFORT [None]
  - GENERAL PHYSICAL HEALTH DETERIORATION [None]
